FAERS Safety Report 6941399-1 (Version None)
Quarter: 2010Q3

REPORT INFORMATION
  Report Type: 
  Country: None (occurrence: None)
  Receive Date: 20100825
  Receipt Date: 20100816
  Transmission Date: 20110219
  Serious: Yes (Hospitalization)
  Sender: FDA-Public Use
  Company Number: DE-ELI_LILLY_AND_COMPANY-DE201008004427

PATIENT
  Age: 84 Year
  Sex: Female

DRUGS (3)
  1. BERLINSULIN 30% REGULAR, 70% NPH [Suspect]
     Dosage: UNK, UNKNOWN
     Route: 065
  2. LISPRO 50LIS50NPL [Suspect]
     Indication: DIABETES MELLITUS
     Dosage: 20 IU, EACH MORNING
     Route: 058
  3. LISPRO 50LIS50NPL [Suspect]
     Dosage: 6 IU, EACH EVENING
     Route: 058

REACTIONS (2)
  - BLOOD GLUCOSE INCREASED [None]
  - DRUG THERAPY CHANGED [None]
